FAERS Safety Report 14008294 (Version 1)
Quarter: 2017Q3

REPORT INFORMATION
  Report Type: Spontaneous
  Country: FR (occurrence: FR)
  Receive Date: 20170925
  Receipt Date: 20170925
  Transmission Date: 20171128
  Serious: Yes (Other)
  Sender: FDA-Public Use
  Company Number: FR-MERCK KGAA-2027558

PATIENT
  Age: 70 Year
  Sex: Female

DRUGS (4)
  1. LAMALINE CAFFEINE, PARACETAMOL, ATROPA BELLADONNA, PAPAVER SOMNIFERM [Concomitant]
  2. NOVOTHYROX [Suspect]
     Active Substance: LEVOTHYROXINE SODIUM
     Route: 048
     Dates: start: 20170818
  3. ESOMEPRAZOLE(ESOMEPRAZOLE) [Concomitant]
  4. PENTASA [Concomitant]
     Active Substance: MESALAMINE

REACTIONS (4)
  - Headache [Not Recovered/Not Resolved]
  - Insomnia [Not Recovered/Not Resolved]
  - Diarrhoea [Not Recovered/Not Resolved]
  - Fatigue [Not Recovered/Not Resolved]

NARRATIVE: CASE EVENT DATE: 20170819
